FAERS Safety Report 10993231 (Version 2)
Quarter: 2015Q2

REPORT INFORMATION
  Report Type: Report from Study
  Country: US (occurrence: US)
  Receive Date: 20150407
  Receipt Date: 20150520
  Transmission Date: 20150821
  Serious: Yes (Hospitalization)
  Sender: FDA-Public Use
  Company Number: US-BEH-2014047144

PATIENT
  Sex: Female
  Weight: 72 kg

DRUGS (1)
  1. HIZENTRA [Suspect]
     Active Substance: HUMAN IMMUNOGLOBULIN G
     Dosage: ??-OCT-2013
     Route: 058

REACTIONS (2)
  - Anaemia [Recovered/Resolved]
  - Exposure during pregnancy [Recovered/Resolved]
